FAERS Safety Report 6571621-5 (Version None)
Quarter: 2010Q1

REPORT INFORMATION
  Report Type: 
  Country: None (occurrence: None)
  Receive Date: 20100205
  Receipt Date: 20100125
  Transmission Date: 20100710
  Serious: Yes (Other)
  Sender: FDA-Public Use
  Company Number: PHHY2009GB57405

PATIENT
  Sex: Female

DRUGS (8)
  1. CLOZARIL [Suspect]
     Indication: SCHIZOPHRENIA
     Dosage: UNK
     Dates: start: 20091130, end: 20091209
  2. VERAPAMIL [Concomitant]
     Indication: ATRIAL FLUTTER
     Dosage: 80 MG, TID
     Route: 048
     Dates: start: 20091201
  3. AMISULPRIDE [Concomitant]
     Dosage: 400 MG, BID
     Route: 048
  4. ORPHENADRINE CITRATE [Concomitant]
     Dosage: 50 MG, BID
     Route: 048
  5. VENLAFAXINE [Concomitant]
     Dosage: 300 MG, QD
     Route: 048
  6. DIAZEPAM [Concomitant]
     Dosage: 10 MG, TID
     Route: 048
  7. LITHIUM CARBONATE [Concomitant]
     Dosage: 800 MG DAILY
     Route: 048
  8. TEMAZEPAM [Concomitant]
     Dosage: 20 MG NOCTE
     Route: 048

REACTIONS (1)
  - ATRIAL FLUTTER [None]
